FAERS Safety Report 8478041-7 (Version None)
Quarter: 2012Q2

REPORT INFORMATION
  Report Type: 
  Country: None (occurrence: None)
  Receive Date: 20120629
  Receipt Date: 20120625
  Transmission Date: 20120825
  Serious: Yes (Hospitalization)
  Sender: FDA-Public Use
  Company Number: AT-ABBOTT-12P-009-0910585-00

PATIENT
  Sex: Male

DRUGS (4)
  1. ZEMPLAR [Suspect]
     Indication: HYPERPARATHYROIDISM SECONDARY
     Dosage: 7MCG DAILY
     Route: 048
     Dates: start: 20110609
  2. CINACALCET HYDROCHLORIDE [Concomitant]
     Indication: PRODUCT USED FOR UNKNOWN INDICATION
     Dosage: 30MG DAILY
     Dates: end: 20110517
  3. SEVELAMER CARBONATE [Concomitant]
     Indication: PRODUCT USED FOR UNKNOWN INDICATION
     Dosage: 3.2GRAM DAILY
     Dates: end: 20110609
  4. ANTIPHOSPHAT [Concomitant]
     Indication: PRODUCT USED FOR UNKNOWN INDICATION
     Dosage: 2.4GRAM DAILY
     Dates: start: 20110609

REACTIONS (3)
  - PRURITUS [None]
  - PERITONITIS [None]
  - FATIGUE [None]
